FAERS Safety Report 8123785-X (Version None)
Quarter: 2012Q1

REPORT INFORMATION
  Report Type: 
  Country: None (occurrence: None)
  Receive Date: 20120208
  Receipt Date: 20120203
  Transmission Date: 20120608
  Serious: Yes (Life-Threatening, Other)
  Sender: FDA-Public Use
  Company Number: US-ASTRAZENECA-2012SE07866

PATIENT
  Age: 44 Year
  Sex: Male

DRUGS (1)
  1. SEROQUEL [Suspect]
     Dosage: 100 MG AND 400 MG
     Route: 048

REACTIONS (4)
  - SUICIDE ATTEMPT [None]
  - HEPATITIS C [None]
  - DRUG EFFECT DECREASED [None]
  - BRAIN INJURY [None]
